FAERS Safety Report 18413070 (Version 4)
Quarter: 2021Q1

REPORT INFORMATION
  Report Type: Report from Study
  Country: EG (occurrence: EG)
  Receive Date: 20201021
  Receipt Date: 20210325
  Transmission Date: 20210419
  Serious: Yes (Other)
  Sender: FDA-Public Use
  Company Number: EG-SEATTLE GENETICS-2019SGN03395

PATIENT
  Sex: Male

DRUGS (1)
  1. BRENTUXIMAB VEDOTIN [Suspect]
     Active Substance: BRENTUXIMAB VEDOTIN
     Indication: HODGKIN^S DISEASE
     Dosage: UNK
     Route: 042
     Dates: start: 20190910, end: 202004

REACTIONS (11)
  - White blood cell count decreased [Unknown]
  - Weight decreased [Unknown]
  - Vomiting [Unknown]
  - COVID-19 [Recovered/Resolved]
  - Liver function test increased [Unknown]
  - Fatigue [Unknown]
  - Diabetes mellitus [Unknown]
  - Renal function test abnormal [Unknown]
  - Oral fungal infection [Unknown]
  - Dry mouth [Unknown]
  - Nausea [Unknown]
